FAERS Safety Report 5274087-0 (Version None)
Quarter: 2007Q1

REPORT INFORMATION
  Report Type: 
  Country: None (occurrence: None)
  Receive Date: 20070323
  Receipt Date: 20070312
  Transmission Date: 20070707
  Serious: Yes (Other)
  Sender: FDA-Public Use
  Company Number: PHBS2007JP04278

PATIENT
  Age: 77 Year
  Sex: Female

DRUGS (1)
  1. LUDIOMIL [Suspect]
     Indication: DEPRESSION
     Route: 048
     Dates: start: 20060901

REACTIONS (8)
  - BLOOD LACTATE DEHYDROGENASE INCREASED [None]
  - BRONCHOALVEOLAR LAVAGE ABNORMAL [None]
  - C-REACTIVE PROTEIN INCREASED [None]
  - CELL MARKER INCREASED [None]
  - CHEST X-RAY ABNORMAL [None]
  - LUNG INFILTRATION [None]
  - PNEUMONITIS [None]
  - WHITE BLOOD CELL COUNT INCREASED [None]
